FAERS Safety Report 9355450 (Version 1)
Quarter: 2013Q2

REPORT INFORMATION
  Report Type: Spontaneous
  Country: NL (occurrence: NL)
  Receive Date: 20130619
  Receipt Date: 20130619
  Transmission Date: 20140414
  Serious: Yes (Death)
  Sender: FDA-Public Use
  Company Number: NL-PFIZER INC-2013180414

PATIENT
  Age: 86 Year
  Sex: Female

DRUGS (11)
  1. SOMAVERT [Suspect]
     Indication: ACROMEGALY
     Dosage: 20 MG, 1X/DAY
     Route: 058
     Dates: start: 20101209
  2. ACENOCOUMAROL [Concomitant]
     Dosage: 1 MG, UNK
  3. AMOXICILLIN TRIHYDRATE/CLAVULANIC ACID [Concomitant]
     Dosage: 500/ 125 MG,UNK
  4. AMYLMETACRESOL/DICHLOROBENZYL ALCOHOL [Concomitant]
     Dosage: UNK
  5. CIPROFLOXACIN [Concomitant]
     Dosage: 250 MG, UNK
  6. FUROSEMIDE [Concomitant]
     Dosage: 40 MG, UNK
  7. OMEPRAZOL [Concomitant]
     Dosage: 20 MG, UNK
  8. SALBUTAMOL [Concomitant]
     Dosage: 100 UG/DOSIS, UNK
  9. SOTALOL [Concomitant]
     Dosage: 40 MG, UNK
  10. TEMAZEPAM [Concomitant]
     Dosage: 10 MG, UNK
  11. TRAMADOL [Concomitant]
     Dosage: 50 MG, UNK

REACTIONS (1)
  - Death [Fatal]
